FAERS Safety Report 9477843 (Version 1)
Quarter: 2013Q3

REPORT INFORMATION
  Report Type: Spontaneous
  Country: US (occurrence: None)
  Receive Date: 20130826
  Receipt Date: 20130826
  Transmission Date: 20140515
  Serious: Yes (Disabling)
  Sender: FDA-Public Use
  Company Number: None

PATIENT
  Age: 54 Year
  Sex: Male
  Weight: 97.52 kg

DRUGS (1)
  1. AVINZA [Suspect]
     Indication: PAIN
     Dosage: 1 ONCE DAILY TAKEN BY MOUTH.
     Route: 048

REACTIONS (1)
  - Suicidal ideation [None]
